FAERS Safety Report 5798147-0 (Version None)
Quarter: 2008Q2

REPORT INFORMATION
  Report Type: 
  Country: None (occurrence: None)
  Receive Date: 20080620
  Receipt Date: 20080215
  Transmission Date: 20081010
  Serious: Yes (Hospitalization)
  Sender: FDA-Public Use
  Company Number: 013496

PATIENT
  Age: 55 Year
  Sex: Female
  Weight: 93.4 kg

DRUGS (6)
  1. VERAPAMIL EXTENDED-RELEASE [Suspect]
     Indication: HYPERTENSION
     Dosage: 240 MG, ONCE/DAY, ORAL
     Route: 048
     Dates: start: 20060101
  2. MOEXIPRIL HYDROCHLORIDE [Suspect]
     Indication: HYPERTENSION
     Dosage: 15 MG, ONCE/DAY, ORAL
     Route: 048
     Dates: start: 20060101
  3. TRANDOLAPRIL [Suspect]
     Indication: HYPERTENSION
     Dosage: 2 MG, ONCE/DAY, ORAL
     Route: 048
     Dates: start: 20060101
  4. NEXIUM [Concomitant]
  5. DARVOCET-N 100 [Concomitant]
  6. INSULIN (INSULIN) [Concomitant]

REACTIONS (3)
  - CEREBROVASCULAR ACCIDENT [None]
  - HEADACHE [None]
  - PARAESTHESIA [None]
